FAERS Safety Report 5158125-1 (Version None)
Quarter: 2006Q4

REPORT INFORMATION
  Report Type: 
  Country: None (occurrence: None)
  Receive Date: 20061117
  Receipt Date: 20061031
  Transmission Date: 20070319
  Serious: Yes (Hospitalization)
  Sender: FDA-Public Use
  Company Number: 232290

PATIENT
  Age: 40 Year
  Sex: Female
  Weight: 60 kg

DRUGS (4)
  1. HERCEPTIN [Suspect]
     Indication: BREAST CANCER
     Dosage: INTRAVENOUS
     Route: 042
     Dates: start: 20060415
  2. METOPROLOL SUCCINATE [Concomitant]
  3. LETROZOLE [Concomitant]
  4. PARACETAMOL/CODEINE (ACETAMINOPHEN, CODEINE PHOSPHATE) [Concomitant]

REACTIONS (6)
  - FACE OEDEMA [None]
  - INFUSION RELATED REACTION [None]
  - PHARYNGEAL OEDEMA [None]
  - PRURITUS [None]
  - SCAB [None]
  - URTICARIA [None]
